FAERS Safety Report 4277120-8 (Version None)
Quarter: 2004Q1

REPORT INFORMATION
  Report Type: 
  Country: None (occurrence: None)
  Receive Date: 20040120
  Receipt Date: 20040115
  Transmission Date: 20041129
  Serious: Yes (Other)
  Sender: FDA-Public Use
  Company Number: 163-20785-04010391

PATIENT
  Age: 32 Year
  Sex: Female

DRUGS (1)
  1. THALOMID [Suspect]
     Indication: BRAIN NEOPLASM MALIGNANT
     Dosage: 400 MG, DAILY, ORAL
     Route: 048
     Dates: start: 20031221

REACTIONS (9)
  - BLOOD HUMAN CHORIONIC GONADOTROPIN INCREASED [None]
  - EOSINOPHIL PERCENTAGE INCREASED [None]
  - HAEMATOCRIT DECREASED [None]
  - HAEMOGLOBIN DECREASED [None]
  - LYMPHOCYTE COUNT DECREASED [None]
  - MONOCYTE PERCENTAGE INCREASED [None]
  - PLATELET COUNT DECREASED [None]
  - RED CELL DISTRIBUTION WIDTH INCREASED [None]
  - WHITE BLOOD CELL COUNT DECREASED [None]
